FAERS Safety Report 10219739 (Version 1)
Quarter: 2014Q2

REPORT INFORMATION
  Report Type: Report from Study
  Country: US (occurrence: US)
  Receive Date: 20140605
  Receipt Date: 20140605
  Transmission Date: 20141212
  Serious: Yes (Other)
  Sender: FDA-Public Use
  Company Number: US-SA-2014SA070087

PATIENT
  Sex: Male

DRUGS (2)
  1. LANTUS SOLOSTAR [Suspect]
     Indication: DIABETES MELLITUS
     Dosage: DOSE- 32 UNITS IN THE MORNING AND 29 UNITS IN NIGHT
     Route: 065
  2. SOLOSTAR [Concomitant]
     Indication: DIABETES MELLITUS

REACTIONS (2)
  - Atrioventricular block [Unknown]
  - Drug administration error [Unknown]
